FAERS Safety Report 5309297-7 (Version None)
Quarter: 2007Q2

REPORT INFORMATION
  Report Type: 
  Country: None (occurrence: None)
  Receive Date: 20070427
  Receipt Date: 20070418
  Transmission Date: 20071010
  Serious: Yes (Other)
  Sender: FDA-Public Use
  Company Number: JP-ROCHE-494264

PATIENT
  Age: 82 Year
  Sex: Female

DRUGS (2)
  1. TAMIFLU [Suspect]
     Indication: INFLUENZA
     Route: 048
     Dates: start: 20070406, end: 20070408
  2. CALONAL [Concomitant]

REACTIONS (2)
  - DELUSION [None]
  - HALLUCINATION, AUDITORY [None]
